FAERS Safety Report 24620606 (Version 1)
Quarter: 2024Q4

REPORT INFORMATION
  Report Type: Spontaneous
  Country: DE (occurrence: DE)
  Receive Date: 20241114
  Receipt Date: 20241114
  Transmission Date: 20250114
  Serious: Yes (Other)
  Sender: FRESENIUS KABI
  Company Number: DE-FreseniusKabi-FK202416989

PATIENT
  Age: 42 Year
  Sex: Female

DRUGS (4)
  1. CARBOPLATIN [Suspect]
     Active Substance: CARBOPLATIN
     Indication: HER2 positive breast cancer
     Dosage: 4?CYCLES OF TCHP
  2. DOCETAXEL [Suspect]
     Active Substance: DOCETAXEL
     Indication: HER2 positive breast cancer
     Dosage: 4?CYCLES OF TCHP
  3. TRASTUZUMAB [Suspect]
     Active Substance: TRASTUZUMAB
     Indication: HER2 positive breast cancer
     Dosage: 4?CYCLES OF TCHP?SUBCUTANEOUS?TRASTUZUMAB/PERTUZUMAB WAS CONTINUED
  4. PERTUZUMAB [Suspect]
     Active Substance: PERTUZUMAB
     Indication: HER2 positive breast cancer
     Dosage: 4?CYCLES OF TCHP?SUBCUTANEOUS?TRASTUZUMAB/PERTUZUMAB WAS CONTINUED

REACTIONS (2)
  - Papilloedema [Recovering/Resolving]
  - Central vision loss [Recovered/Resolved]
